FAERS Safety Report 5598463-1 (Version None)
Quarter: 2008Q1

REPORT INFORMATION
  Report Type: 
  Country: None (occurrence: None)
  Receive Date: 20080122
  Receipt Date: 20080114
  Transmission Date: 20080703
  Serious: Yes (Hospitalization)
  Sender: FDA-Public Use
  Company Number: DE-JNJFOC-20071200209

PATIENT
  Sex: Female
  Weight: 143 kg

DRUGS (4)
  1. TOPAMAX [Suspect]
     Indication: DEPRESSION
     Route: 048
  2. TOPAMAX [Suspect]
     Indication: BORDERLINE PERSONALITY DISORDER
     Route: 048
  3. TOPAMAX [Suspect]
     Indication: PERSONALITY DISORDER
     Route: 048
  4. CIPRALEX [Suspect]
     Indication: DRUG USE FOR UNKNOWN INDICATION
     Route: 048

REACTIONS (2)
  - POLYARTHRITIS [None]
  - URTICARIA [None]
